FAERS Safety Report 8435208-1 (Version None)
Quarter: 2012Q2

REPORT INFORMATION
  Report Type: 
  Country: None (occurrence: None)
  Receive Date: 20120608
  Receipt Date: 20120608
  Transmission Date: 20120825
  Serious: Yes (Hospitalization)
  Sender: FDA-Public Use
  Company Number: None

PATIENT
  Age: 56 Year

DRUGS (3)
  1. LISINOPRIL [Concomitant]
  2. METHYLPHENIDATE [Concomitant]
  3. METHOTREXATE [Suspect]
     Indication: RHEUMATOID ARTHRITIS
     Dosage: 15MG WEEKLY PO
     Route: 048
     Dates: start: 20120101, end: 20120603

REACTIONS (5)
  - MOUTH ULCERATION [None]
  - SKIN LESION [None]
  - PYREXIA [None]
  - TOXICITY TO VARIOUS AGENTS [None]
  - PURULENCE [None]
